FAERS Safety Report 8134577 (Version 2)
Quarter: 2012Q4

REPORT INFORMATION
  Report Type: 
  Country: EC (occurrence: EC)
  Receive Date: 20110913
  Receipt Date: 20120927
  Transmission Date: 20130627
  Serious: Yes (Other)
  Sender: FDA-Public Use
  Company Number: PHHY2011EC80043

PATIENT
  Age: 51 None
  Sex: Female

DRUGS (2)
  1. ACLASTA [Suspect]
     Indication: OSTEOPOROSIS
     Dosage: 5 mg/100 ml 1 STAT
     Route: 042
     Dates: start: 20071115
  2. ACLASTA [Suspect]
     Dosage: 5 mg/100 ml 1 STAT
     Route: 042
     Dates: start: 20081120

REACTIONS (5)
  - Helicobacter gastritis [Recovering/Resolving]
  - Gastritis [Recovering/Resolving]
  - Gastrooesophageal reflux disease [Recovering/Resolving]
  - Dyspepsia [Recovering/Resolving]
  - Oesophagitis [Recovering/Resolving]
